FAERS Safety Report 25100565 (Version 1)
Quarter: 2025Q1

REPORT INFORMATION
  Report Type: Report from Study
  Country: DE (occurrence: DE)
  Receive Date: 20250320
  Receipt Date: 20250320
  Transmission Date: 20250408
  Serious: Yes (Other)
  Sender: AUROBINDO
  Company Number: DE-AUROBINDO-AUR-APL-2025-014956

PATIENT

DRUGS (5)
  1. OLANZAPINE [Interacting]
     Active Substance: OLANZAPINE
     Indication: Mental disorder
     Route: 065
  2. QUETIAPINE [Interacting]
     Active Substance: QUETIAPINE
     Indication: Mental disorder
     Route: 065
  3. PROMETHAZINE [Interacting]
     Active Substance: PROMETHAZINE HYDROCHLORIDE
     Indication: Mental disorder
     Route: 065
  4. LITHIUM [Interacting]
     Active Substance: LITHIUM
     Indication: Mental disorder
     Route: 065
  5. MELPERONE [Interacting]
     Active Substance: MELPERONE
     Indication: Mental disorder
     Route: 065

REACTIONS (3)
  - Neuroleptic malignant syndrome [Unknown]
  - Extrapyramidal disorder [Unknown]
  - Drug interaction [Unknown]
